FAERS Safety Report 9162956 (Version 1)
Quarter: 2013Q1

REPORT INFORMATION
  Report Type: Spontaneous
  Country: JP (occurrence: JP)
  Receive Date: 20130314
  Receipt Date: 20130314
  Transmission Date: 20140127
  Serious: Yes (Other)
  Sender: FDA-Public Use
  Company Number: JP-PFIZER INC-2013082415

PATIENT
  Age: 88 Year
  Sex: Female

DRUGS (4)
  1. LYRICA [Suspect]
     Indication: DIABETIC NEUROPATHY
     Dosage: 25 MG/DAY
     Route: 048
     Dates: start: 20130213, end: 20130307
  2. ARICEPT [Concomitant]
     Dosage: 3 MG/DAY
     Route: 048
  3. WARFARIN [Concomitant]
     Dosage: 2 MG/DAY
     Route: 048
  4. VESICARE [Concomitant]
     Dosage: 5 MG/DAY
     Route: 048

REACTIONS (1)
  - Dementia [Unknown]
